FAERS Safety Report 15864093 (Version 3)
Quarter: 2019Q1

REPORT INFORMATION
  Report Type: Spontaneous
  Country: US (occurrence: US)
  Receive Date: 20190124
  Receipt Date: 20190308
  Transmission Date: 20190417
  Serious: No
  Sender: FDA-Public Use
  Company Number: US-ASTRAZENECA-2019SE13125

PATIENT
  Age: 1047 Month
  Sex: Female

DRUGS (3)
  1. COMBIVENT [Concomitant]
     Active Substance: ALBUTEROL SULFATE\IPRATROPIUM BROMIDE
     Indication: WHEEZING
     Dosage: 20-100MCG 1 PUFF EVERY 6 HOURS AS NEEDED
     Route: 055
     Dates: start: 201901
  2. COMBIVENT [Concomitant]
     Active Substance: ALBUTEROL SULFATE\IPRATROPIUM BROMIDE
     Indication: DYSPNOEA
     Dosage: 20-100MCG 1 PUFF EVERY 6 HOURS AS NEEDED
     Route: 055
     Dates: start: 201901
  3. SYMBICORT [Suspect]
     Active Substance: BUDESONIDE\FORMOTEROL FUMARATE DIHYDRATE
     Dosage: 160/4.5MCG, 2 PUFFS TWICE A DAY
     Route: 055
     Dates: start: 201901

REACTIONS (5)
  - Intentional device misuse [Unknown]
  - Device issue [Unknown]
  - Feeling abnormal [Unknown]
  - Visual impairment [Unknown]
  - Product dose omission [Unknown]

NARRATIVE: CASE EVENT DATE: 201901
